FAERS Safety Report 9979783 (Version 1)
Quarter: 2014Q1

REPORT INFORMATION
  Report Type: Report from Study
  Country: US (occurrence: US)
  Receive Date: 20140306
  Receipt Date: 20140306
  Transmission Date: 20141002
  Serious: No
  Sender: FDA-Public Use
  Company Number: US-ABBVIE-13P-163-1174114-00

PATIENT
  Age: 57 Year
  Sex: Female
  Weight: 131.21 kg

DRUGS (14)
  1. HUMIRA [Suspect]
     Indication: PSORIASIS
     Dates: start: 201112, end: 201203
  2. HUMIRA [Suspect]
     Indication: PSORIATIC ARTHROPATHY
     Dates: start: 20130816
  3. METFORMIN [Concomitant]
     Indication: DIABETES MELLITUS
  4. NEURONTIN [Concomitant]
     Indication: NEUROPATHY PERIPHERAL
  5. SPIRONOLACTONE [Concomitant]
     Indication: FLUID RETENTION
  6. LASIX [Concomitant]
     Indication: FLUID RETENTION
  7. MS CONTIN [Concomitant]
     Indication: PAIN
  8. ENALAPRIL [Concomitant]
     Indication: HYPERTENSION
  9. VITAMIN D [Concomitant]
     Indication: VITAMIN SUPPLEMENTATION
  10. CYMBALTA [Concomitant]
     Indication: PAIN
  11. CYMBALTA [Concomitant]
     Indication: DEPRESSION
  12. AMITRIPTYLINE [Concomitant]
     Indication: DEPRESSION
  13. AMITRIPTYLINE [Concomitant]
     Indication: INSOMNIA
  14. SYNTHROID [Concomitant]
     Indication: THYROID DISORDER

REACTIONS (22)
  - Fatigue [Not Recovered/Not Resolved]
  - Glomerular filtration rate decreased [Unknown]
  - Asthenia [Not Recovered/Not Resolved]
  - Psoriasis [Not Recovered/Not Resolved]
  - Erythrodermic psoriasis [Not Recovered/Not Resolved]
  - Dyspnoea [Not Recovered/Not Resolved]
  - Drug ineffective [Not Recovered/Not Resolved]
  - Pruritus [Not Recovered/Not Resolved]
  - Anaemia [Not Recovered/Not Resolved]
  - Feeling cold [Not Recovered/Not Resolved]
  - Cellulitis [Unknown]
  - Blood thyroid stimulating hormone increased [Unknown]
  - Blood alkaline phosphatase increased [Unknown]
  - Blood urea increased [Unknown]
  - Blood creatinine increased [Unknown]
  - Blood sodium increased [Unknown]
  - Blood glucose increased [Unknown]
  - Burning sensation [Recovered/Resolved]
  - Psoriasis [Not Recovered/Not Resolved]
  - Pain in extremity [Not Recovered/Not Resolved]
  - Paraesthesia [Recovered/Resolved]
  - Hypoaesthesia [Unknown]
